FAERS Safety Report 14187456 (Version 1)
Quarter: 2017Q4

REPORT INFORMATION
  Report Type: Spontaneous
  Country: CA (occurrence: CA)
  Receive Date: 20171113
  Receipt Date: 20171113
  Transmission Date: 20180321
  Serious: Yes (Disabling)
  Sender: FDA-Public Use
  Company Number: None

PATIENT
  Age: 68 Year
  Sex: Female
  Weight: 76.5 kg

DRUGS (12)
  1. PREGABALIN. [Concomitant]
     Active Substance: PREGABALIN
  2. ESCITALOPRAM [Concomitant]
     Active Substance: ESCITALOPRAM OXALATE
  3. ALENDRONATE [Concomitant]
     Active Substance: ALENDRONATE SODIUM
  4. LING ZHI  LUNG [Concomitant]
  5. PREDNISONE. [Suspect]
     Active Substance: PREDNISONE
     Indication: DERMATITIS
  6. ELIDEL [Suspect]
     Active Substance: PIMECROLIMUS
     Indication: DERMATITIS
  7. POTASSIUM K [Concomitant]
  8. TYLENOL [Concomitant]
     Active Substance: ACETAMINOPHEN
  9. ATARAX [Concomitant]
     Active Substance: HYDROXYZINE HYDROCHLORIDE
  10. DAILY VITAMIN [Concomitant]
     Active Substance: VITAMINS
  11. VITAMIN B12 [Concomitant]
     Active Substance: CYANOCOBALAMIN
  12. FOLIC [Concomitant]
     Active Substance: FOLIC ACID

REACTIONS (7)
  - Dry skin [None]
  - Depression [None]
  - Skin exfoliation [None]
  - Pain of skin [None]
  - Skin irritation [None]
  - Pruritus [None]
  - Skin swelling [None]

NARRATIVE: CASE EVENT DATE: 20090331
